FAERS Safety Report 19185818 (Version 2)
Quarter: 2021Q2

REPORT INFORMATION
  Report Type: Report from Study
  Country: CA (occurrence: CA)
  Receive Date: 20210427
  Receipt Date: 20210511
  Transmission Date: 20210717
  Serious: Yes (Other)
  Sender: FDA-Public Use
  Company Number: NVSC2021CA085850

PATIENT
  Sex: Male

DRUGS (3)
  1. METHOTREXATE. [Concomitant]
     Active Substance: METHOTREXATE
     Indication: PRODUCT USED FOR UNKNOWN INDICATION
     Dosage: UNK, QW
     Route: 048
     Dates: start: 2013
  2. COSENTYX [Suspect]
     Active Substance: SECUKINUMAB
     Indication: ANKYLOSING SPONDYLITIS
     Dosage: 150 MG, QMO
     Route: 058
     Dates: start: 20190528
  3. COSENTYX [Suspect]
     Active Substance: SECUKINUMAB
     Indication: PSORIATIC ARTHROPATHY
     Dosage: 300 MG, QMO
     Route: 058

REACTIONS (14)
  - Psoriasis [Unknown]
  - Penile ulceration [Unknown]
  - Multiple sclerosis [Unknown]
  - Haemangioma [Unknown]
  - Sacroiliitis [Unknown]
  - Abscess limb [Unknown]
  - Arthralgia [Unknown]
  - Bone marrow oedema [Unknown]
  - Nail psoriasis [Unknown]
  - Osteosclerosis [Unknown]
  - Intervertebral disc space narrowing [Unknown]
  - Tenderness [Unknown]
  - Intervertebral disc protrusion [Unknown]
  - Joint effusion [Unknown]
